FAERS Safety Report 9107514 (Version 2)
Quarter: 2013Q1

REPORT INFORMATION
  Report Type: Spontaneous
  Country: BR (occurrence: BR)
  Receive Date: 20130221
  Receipt Date: 20130326
  Transmission Date: 20140127
  Serious: Yes (Other)
  Sender: FDA-Public Use
  Company Number: PHHY2013BR017207

PATIENT
  Age: 57 Year
  Sex: Male
  Weight: 56 kg

DRUGS (5)
  1. CODATEN [Suspect]
     Indication: PAIN
     Dosage: 2 DF, Q6H
     Route: 048
  2. FORASEQ [Suspect]
     Indication: DYSPNOEA
     Dosage: 1 DF (2-3 TIMES A DAY, AS NECESARY)
  3. OXYCONTIN [Suspect]
     Indication: PAIN
     Dosage: 10 MG, Q12H
     Route: 048
     Dates: start: 201301
  4. ATENSINA [Concomitant]
     Indication: BLOOD PRESSURE
     Dosage: 200 MG, DAILY
     Route: 048
  5. FLUOXETINE [Concomitant]
     Indication: PANIC DISORDER
     Dosage: 20 MG, DAILY
     Route: 048

REACTIONS (3)
  - Neoplasm malignant [Unknown]
  - Metastasis [Unknown]
  - Pain [Recovering/Resolving]
